FAERS Safety Report 24431666 (Version 2)
Quarter: 2024Q4

REPORT INFORMATION
  Report Type: Spontaneous
  Country: TR (occurrence: TR)
  Receive Date: 20241014
  Receipt Date: 20241022
  Transmission Date: 20250114
  Serious: Yes (Hospitalization, Other)
  Sender: ASTELLAS
  Company Number: TR-ASTELLAS-2024-AER-010973

PATIENT
  Age: 45 Year
  Sex: Female

DRUGS (1)
  1. TACROLIMUS [Suspect]
     Active Substance: TACROLIMUS
     Indication: Renal transplant
     Dosage: TAKES THE MEDICATION IN THE MORNING AND EVENING AND TAKES AT LEAST 3 PILLS PER DAY.
     Route: 048
     Dates: start: 2018

REACTIONS (3)
  - General physical health deterioration [Recovered/Resolved]
  - Complications of transplanted kidney [Unknown]
  - Product prescribing error [Unknown]

NARRATIVE: CASE EVENT DATE: 20240801
